FAERS Safety Report 6548172-7 (Version None)
Quarter: 2010Q1

REPORT INFORMATION
  Report Type: 
  Country: None (occurrence: None)
  Receive Date: 20100124
  Receipt Date: 20090219
  Transmission Date: 20100710
  Serious: No
  Sender: FDA-Public Use
  Company Number: US-ALLERGAN-0902282US

PATIENT
  Age: 70 Year
  Sex: Male

DRUGS (1)
  1. RESTASIS [Suspect]
     Indication: DRY EYE
     Dosage: UNK, BID
     Route: 047
     Dates: start: 20080901

REACTIONS (2)
  - ERYTHEMA OF EYELID [None]
  - EYE IRRITATION [None]
